FAERS Safety Report 15667631 (Version 1)
Quarter: 2018Q4

REPORT INFORMATION
  Report Type: Spontaneous
  Country: US (occurrence: US)
  Receive Date: 20181128
  Receipt Date: 20181128
  Transmission Date: 20190205
  Serious: No
  Sender: FDA-Public Use
  Company Number: None

PATIENT
  Age: 74 Year
  Sex: Female

DRUGS (1)
  1. BUTRANS [Suspect]
     Active Substance: BUPRENORPHINE
     Indication: PAIN MANAGEMENT
     Dosage: ?          OTHER FREQUENCY:EVERY 7 DAYS;?
     Route: 062
     Dates: start: 20181105, end: 20181128

REACTIONS (1)
  - Product label issue [None]

NARRATIVE: CASE EVENT DATE: 20181128
